FAERS Safety Report 5142715-6 (Version None)
Quarter: 2006Q4

REPORT INFORMATION
  Report Type: 
  Country: None (occurrence: None)
  Receive Date: 20061027
  Receipt Date: 20061009
  Transmission Date: 20070319
  Serious: Yes (Hospitalization, Other)
  Sender: FDA-Public Use
  Company Number: 2006BH013892

PATIENT
  Sex: Female
  Weight: 38 kg

DRUGS (9)
  1. EXTRANEAL [Suspect]
     Indication: PERITONEAL DIALYSIS
     Dosage: 1000 ML; EVERY DAY; IP
     Route: 033
     Dates: start: 20060929, end: 20061003
  2. BEMIKS [Concomitant]
  3. DODEX [Concomitant]
  4. FOSEX [Concomitant]
  5. EPOETIN ALFA [Concomitant]
  6. DIANEAL [Concomitant]
  7. FOLBIOL [Concomitant]
  8. ONE-ALPHA [Concomitant]
  9. EPOETIN BETA [Concomitant]

REACTIONS (7)
  - ABDOMINAL PAIN [None]
  - CULTURE POSITIVE [None]
  - NAUSEA [None]
  - PATHOGEN RESISTANCE [None]
  - PYREXIA [None]
  - STAPHYLOCOCCAL INFECTION [None]
  - VOMITING [None]
